FAERS Safety Report 9526682 (Version 1)
Quarter: 2013Q3

REPORT INFORMATION
  Report Type: Spontaneous
  Country: US (occurrence: US)
  Receive Date: 20130916
  Receipt Date: 20130916
  Transmission Date: 20140515
  Serious: Yes (Other)
  Sender: FDA-Public Use
  Company Number: US-PURDUE-USA-2013-0106347

PATIENT
  Sex: Male

DRUGS (2)
  1. OXYCONTIN (NDA 22-272) [Suspect]
     Indication: GASTRIC DISORDER
     Dosage: 40 MG, UNK
     Dates: start: 2003
  2. OXYCONTIN (NDA 22-272) [Suspect]
     Indication: BACK DISORDER

REACTIONS (4)
  - Gastric operation [Unknown]
  - Surgery [Unknown]
  - Cholecystectomy [Unknown]
  - Pancreatectomy [Unknown]
